FAERS Safety Report 8448351-8 (Version None)
Quarter: 2012Q2

REPORT INFORMATION
  Report Type: 
  Country: None (occurrence: None)
  Receive Date: 20120619
  Receipt Date: 20120615
  Transmission Date: 20120825
  Serious: No
  Sender: FDA-Public Use
  Company Number: US-PFIZER INC-2012115002

PATIENT
  Sex: Female
  Weight: 68 kg

DRUGS (4)
  1. LYRICA [Suspect]
     Indication: FIBROMYALGIA
     Dosage: 75 MG, 2X/DAY
     Route: 048
     Dates: start: 20120201, end: 20120101
  2. COPAXONE [Concomitant]
     Dosage: UNK
  3. LYRICA [Suspect]
     Indication: PAIN
     Dosage: 75 MG, 3X/DAY
     Route: 048
     Dates: start: 20120101
  4. DETROL LA [Concomitant]
     Dosage: UNK

REACTIONS (2)
  - PAIN [None]
  - DRUG INEFFECTIVE [None]
